FAERS Safety Report 4461263-X (Version None)
Quarter: 2004Q3

REPORT INFORMATION
  Report Type: 
  Country: None (occurrence: None)
  Receive Date: 20040928
  Receipt Date: 20040917
  Transmission Date: 20050211
  Serious: Yes (Death, Hospitalization)
  Sender: FDA-Public Use
  Company Number: SE-ABBOTT-04P-150-0273753-00

PATIENT
  Age: 64 Year
  Sex: Male

DRUGS (4)
  1. ERGENYL SLOW RELEASE TABLETS [Suspect]
     Indication: MUSCLE CRAMP
     Route: 048
     Dates: start: 20030915, end: 20031018
  2. SPIRONOLACTONE [Concomitant]
     Indication: DRUG USE FOR UNKNOWN INDICATION
     Route: 048
  3. LACTULOSE [Concomitant]
     Indication: DRUG USE FOR UNKNOWN INDICATION
     Route: 048
  4. LANSOPRAZOLE [Concomitant]
     Indication: DRUG USE FOR UNKNOWN INDICATION
     Route: 048

REACTIONS (10)
  - ABDOMINAL PAIN [None]
  - ADVERSE DRUG REACTION [None]
  - HEPATORENAL SYNDROME [None]
  - HYPOALBUMINAEMIA [None]
  - JAUNDICE [None]
  - LIVER FUNCTION TEST ABNORMAL [None]
  - MELAENA [None]
  - NAUSEA [None]
  - OESOPHAGEAL VARICES HAEMORRHAGE [None]
  - VOMITING [None]
